FAERS Safety Report 26216959 (Version 1)
Quarter: 2025Q4

REPORT INFORMATION
  Report Type: Spontaneous
  Country: EU (occurrence: EU)
  Receive Date: 20251231
  Receipt Date: 20251231
  Transmission Date: 20260117
  Serious: Yes (Life-Threatening, Hospitalization, Other)
  Sender: AMGEN
  Company Number: None

PATIENT
  Age: 74 Year
  Sex: Female
  Weight: 49 kg

DRUGS (3)
  1. BEVACIZUMAB [Suspect]
     Active Substance: BEVACIZUMAB
     Indication: Chemotherapy
     Dosage: 7.5 MILLIGRAM/KILOGRAM
     Route: 040
     Dates: start: 20250127, end: 20250127
  2. CARBOPLATIN [Suspect]
     Active Substance: CARBOPLATIN
     Indication: Chemotherapy
     Dosage: 475 MILLIGRAM
     Route: 040
     Dates: start: 20250127, end: 20250127
  3. ALIMTA [Suspect]
     Active Substance: PEMETREXED DISODIUM
     Indication: Chemotherapy
     Dosage: 500 MILLIGRAM/SQ. METER
     Route: 040
     Dates: start: 20250127, end: 20250127

REACTIONS (3)
  - Rash pruritic [Recovered/Resolved]
  - Pancytopenia [Recovered/Resolved]
  - Acute kidney injury [Recovering/Resolving]

NARRATIVE: CASE EVENT DATE: 20250202
